FAERS Safety Report 8606236-8 (Version None)
Quarter: 2012Q3

REPORT INFORMATION
  Report Type: 
  Country: None (occurrence: None)
  Receive Date: 20120820
  Receipt Date: 19940330
  Transmission Date: 20120928
  Serious: Yes (Hospitalization)
  Sender: FDA-Public Use
  Company Number: US-ROCHE-1101580

PATIENT
  Sex: Male

DRUGS (4)
  1. ACTIVASE [Suspect]
     Indication: ACUTE MYOCARDIAL INFARCTION
     Route: 042
  2. ACTIVASE [Suspect]
     Route: 042
  3. ACTIVASE [Suspect]
     Route: 042
  4. ACTIVASE [Suspect]
     Route: 042

REACTIONS (6)
  - HYPOTENSION [None]
  - VOMITING [None]
  - CHEST PAIN [None]
  - VENTRICULAR EXTRASYSTOLES [None]
  - NAUSEA [None]
  - NASAL DISCOMFORT [None]
